FAERS Safety Report 6869370-9 (Version None)
Quarter: 2010Q3

REPORT INFORMATION
  Report Type: 
  Country: None (occurrence: None)
  Receive Date: 20100722
  Receipt Date: 20080803
  Transmission Date: 20110219
  Serious: No
  Sender: FDA-Public Use
  Company Number: US-PFIZER INC-2008065293

PATIENT
  Sex: Male
  Weight: 84.1 kg

DRUGS (2)
  1. CHANTIX [Suspect]
     Indication: TOBACCO USER
     Route: 048
     Dates: start: 20080730
  2. CIALIS [Concomitant]

REACTIONS (2)
  - HEADACHE [None]
  - NECK PAIN [None]
